FAERS Safety Report 22043150 (Version 1)
Quarter: 2023Q1

REPORT INFORMATION
  Report Type: Spontaneous
  Country: US (occurrence: None)
  Receive Date: 20230228
  Receipt Date: 20230228
  Transmission Date: 20230418
  Serious: Yes (Hospitalization)
  Sender: FDA-Public Use
  Company Number: 2023A043345

PATIENT
  Sex: Male
  Weight: 87.5 kg

DRUGS (4)
  1. FARXIGA [Suspect]
     Active Substance: DAPAGLIFLOZIN PROPANEDIOL
     Indication: Diabetes mellitus
     Route: 048
  2. METFORMIN [Concomitant]
     Active Substance: METFORMIN HYDROCHLORIDE
     Indication: Diabetes mellitus
  3. ZOFRAN [Concomitant]
     Active Substance: ONDANSETRON HYDROCHLORIDE
  4. OZEMPIC [Concomitant]
     Active Substance: SEMAGLUTIDE

REACTIONS (13)
  - Ketoacidosis [Unknown]
  - Glomerular filtration rate abnormal [Unknown]
  - Renal disorder [Unknown]
  - Nausea [Recovered/Resolved]
  - Condition aggravated [Unknown]
  - Hiccups [Unknown]
  - Vomiting [Unknown]
  - Eating disorder [Unknown]
  - Malaise [Unknown]
  - Chronic kidney disease [Unknown]
  - Blood creatinine abnormal [Unknown]
  - Glycosylated haemoglobin abnormal [Unknown]
  - Weight decreased [Unknown]
